FAERS Safety Report 5560330-7 (Version None)
Quarter: 2007Q4

REPORT INFORMATION
  Report Type: 
  Country: None (occurrence: None)
  Receive Date: 20071214
  Receipt Date: 20071031
  Transmission Date: 20080405
  Serious: No
  Sender: FDA-Public Use
  Company Number: US-ABBOTT-07P-163-0423538-00

PATIENT
  Sex: Male
  Weight: 104.5 kg

DRUGS (5)
  1. HUMIRA [Suspect]
     Indication: POLYARTHRITIS
     Route: 058
     Dates: start: 20070801, end: 20071017
  2. HUMIRA [Suspect]
     Route: 058
     Dates: start: 20071017
  3. PLAQUENIL [Concomitant]
     Indication: POLYARTHRITIS
     Route: 048
     Dates: start: 20060101
  4. GLIPIZIDE [Concomitant]
     Indication: DIABETES MELLITUS
     Route: 048
     Dates: start: 20010101
  5. METHADONE HCL [Concomitant]
     Indication: POLYARTHRITIS
     Route: 048
     Dates: start: 20070601

REACTIONS (1)
  - DRUG INEFFECTIVE [None]
